FAERS Safety Report 5854127-8 (Version None)
Quarter: 2008Q3

REPORT INFORMATION
  Report Type: 
  Country: None (occurrence: None)
  Receive Date: 20080822
  Receipt Date: 20071019
  Transmission Date: 20090109
  Serious: No
  Sender: FDA-Public Use
  Company Number: US-BRISTOL-MYERS SQUIBB COMPANY-13955075

PATIENT
  Age: 60 Year
  Sex: Male

DRUGS (1)
  1. MAXIPIME [Suspect]
     Indication: POST PROCEDURAL INFECTION
     Dates: start: 20070926

REACTIONS (2)
  - NEUTROPHIL COUNT DECREASED [None]
  - WHITE BLOOD CELL COUNT DECREASED [None]
